FAERS Safety Report 7951553-8 (Version None)
Quarter: 2011Q4

REPORT INFORMATION
  Report Type: 
  Country: None (occurrence: None)
  Receive Date: 20111201
  Receipt Date: 20111123
  Transmission Date: 20120403
  Serious: Yes (Death)
  Sender: FDA-Public Use
  Company Number: DE-ROCHE-1013543

PATIENT
  Age: 83 Year
  Sex: Male
  Weight: 57.8 kg

DRUGS (4)
  1. XELODA [Suspect]
     Indication: GASTRIC CANCER
     Route: 048
     Dates: start: 20090915, end: 20091020
  2. IRINOTECAN HCL [Suspect]
     Indication: GASTRIC CANCER
     Route: 042
     Dates: start: 20090915, end: 20091020
  3. SPIRONOLACTONE [Concomitant]
     Route: 048
     Dates: start: 20090730
  4. NOVALGIN [Concomitant]
     Route: 048
     Dates: start: 20090730

REACTIONS (3)
  - HEMIPARESIS [None]
  - GRAND MAL CONVULSION [None]
  - PNEUMONIA [None]
